FAERS Safety Report 4329375-9 (Version None)
Quarter: 2004Q1

REPORT INFORMATION
  Report Type: 
  Country: None (occurrence: None)
  Receive Date: 20040331
  Receipt Date: 20040331
  Transmission Date: 20041129
  Serious: Yes (Hospitalization, Other)
  Sender: FDA-Public Use
  Company Number: None

PATIENT
  Age: 48 Year
  Sex: Female
  Weight: 66.6788 kg

DRUGS (4)
  1. BUPIVACAINE [Suspect]
     Indication: PAIN MANAGEMENT
     Dosage: 2 ML/HR WITH 1 ML BOLUS Q 45 MIN
     Route: 040
     Dates: start: 20031015, end: 20031023
  2. DEMEROL [Suspect]
     Dosage: OVER 8 DAYS 400 CC TOTAL
     Dates: start: 20031015, end: 20031023
  3. VIOXX [Concomitant]
  4. HERBAL ^LIVER CLEANERS^ [Concomitant]

REACTIONS (5)
  - ASTHENIA [None]
  - HEPATITIS [None]
  - NAUSEA [None]
  - PAIN [None]
  - POST PROCEDURAL COMPLICATION [None]
